FAERS Safety Report 4963550-5 (Version None)
Quarter: 2006Q1

REPORT INFORMATION
  Report Type: 
  Country: None (occurrence: None)
  Receive Date: 20060330
  Receipt Date: 20060322
  Transmission Date: 20060701
  Serious: Yes (Death, Hospitalization)
  Sender: FDA-Public Use
  Company Number: 2006040921

PATIENT
  Age: 89 Year
  Sex: Male

DRUGS (2)
  1. ATORVASTATIN CALCIUM [Suspect]
     Indication: DYSLIPIDAEMIA
     Dosage: 10 MG (10 MG, 1 IN 1 ), ORAL
     Route: 048
     Dates: start: 19980911, end: 20051213
  2. MONOCORDIL (ISOSORBIDE MONONITRATE) [Concomitant]

REACTIONS (2)
  - ISCHAEMIA [None]
  - MULTI-ORGAN FAILURE [None]
